FAERS Safety Report 14383689 (Version 4)
Quarter: 2020Q1

REPORT INFORMATION
  Report Type: Spontaneous
  Country: JP (occurrence: JP)
  Receive Date: 20180115
  Receipt Date: 20200211
  Transmission Date: 20200409
  Serious: Yes (Hospitalization)
  Sender: FDA-Public Use
  Company Number: JP-UNITED THERAPEUTICS-UNT-2017-013344

PATIENT
  Age: 43 Year
  Sex: Female

DRUGS (5)
  1. REMODULIN [Suspect]
     Active Substance: TREPROSTINIL
     Indication: CONNECTIVE TISSUE DISORDER
  2. REMODULIN [Suspect]
     Active Substance: TREPROSTINIL
     Indication: STILL^S DISEASE
  3. FENTOS [Concomitant]
     Active Substance: FENTANYL
     Indication: STILL^S DISEASE
     Dosage: UNK
     Route: 062
  4. ACTEMRA [Suspect]
     Active Substance: TOCILIZUMAB
     Indication: PRODUCT USED FOR UNKNOWN INDICATION
     Dosage: UNK
     Route: 065
     Dates: start: 20180303
  5. REMODULIN [Suspect]
     Active Substance: TREPROSTINIL
     Indication: PULMONARY ARTERIAL HYPERTENSION
     Dosage: UNK UNK, CONTINUING
     Route: 058
     Dates: start: 20170905, end: 20190910

REACTIONS (6)
  - Infusion site erythema [Recovering/Resolving]
  - Infusion site pain [Not Recovered/Not Resolved]
  - Still^s disease [Unknown]
  - Infusion site induration [Recovering/Resolving]
  - Urinary tract infection [Recovering/Resolving]
  - Device alarm issue [Unknown]

NARRATIVE: CASE EVENT DATE: 201709
